FAERS Safety Report 8792710 (Version 3)
Quarter: 2013Q1

REPORT INFORMATION
  Report Type: Spontaneous
  Country: US (occurrence: US)
  Receive Date: 20120918
  Receipt Date: 20130204
  Transmission Date: 20140127
  Serious: No
  Sender: FDA-Public Use
  Company Number: US-009507513-1209USA002126

PATIENT
  Sex: 0

DRUGS (5)
  1. VICTRELIS [Suspect]
     Dosage: 800 MG, TID
     Route: 048
     Dates: start: 201208
  2. PEG-INTRON [Concomitant]
     Dosage: 150 MICROGRAM, QW
     Route: 058
  3. RIBASPHERE [Concomitant]
     Dosage: 1400 MG, UNK
     Route: 048
  4. CHONDROITIN SULFATE SODIUM [Concomitant]
     Dosage: 250 MG, UNK
  5. VITAMINS (UNSPECIFIED) [Concomitant]

REACTIONS (1)
  - Asthenia [Recovering/Resolving]
